FAERS Safety Report 4693863-6 (Version None)
Quarter: 2005Q2

REPORT INFORMATION
  Report Type: 
  Country: None (occurrence: None)
  Receive Date: 20050615
  Receipt Date: 20050602
  Transmission Date: 20051028
  Serious: Yes (Life-Threatening, Hospitalization, Other)
  Sender: FDA-Public Use
  Company Number: 2005-0008365

PATIENT
  Age: 64 Year
  Sex: Male
  Weight: 80.2867 kg

DRUGS (11)
  1. TRUVADA [Suspect]
     Indication: HIV INFECTION
     Dosage: 1 IN 1 D, ORAL
     Route: 048
     Dates: start: 20050504, end: 20050518
  2. SUSTIVA [Concomitant]
  3. COMBIVIR [Concomitant]
  4. DITROPAN XL [Concomitant]
  5. FLOMAX [Concomitant]
  6. TRICOR [Concomitant]
  7. PROVIGIL [Concomitant]
  8. VALIUM [Concomitant]
  9. SEROQUEL [Concomitant]
  10. OXANDRIN [Concomitant]
  11. VIAGRA [Concomitant]

REACTIONS (15)
  - BLADDER DISORDER [None]
  - CHROMATURIA [None]
  - DYSURIA [None]
  - HAEMODIALYSIS [None]
  - INFLUENZA LIKE ILLNESS [None]
  - LETHARGY [None]
  - MYALGIA [None]
  - NEPHRITIS INTERSTITIAL [None]
  - PROSTATIC DISORDER [None]
  - RENAL DISORDER [None]
  - RENAL FAILURE ACUTE [None]
  - RENAL TUBULAR NECROSIS [None]
  - SCAN ABDOMEN ABNORMAL [None]
  - SPLEEN DISORDER [None]
  - URINARY TRACT INFECTION [None]
